FAERS Safety Report 15696768 (Version 1)
Quarter: 2018Q4

REPORT INFORMATION
  Report Type: Spontaneous
  Country: US (occurrence: US)
  Receive Date: 20181206
  Receipt Date: 20181206
  Transmission Date: 20190205
  Serious: No
  Sender: FDA-Public Use
  Company Number: US-PFIZER INC-2018490165

PATIENT
  Age: 64 Year
  Sex: Female
  Weight: 67.57 kg

DRUGS (10)
  1. CARBIDOPA/LEVODOPA [Concomitant]
     Indication: RESTLESS LEGS SYNDROME
     Dosage: 1 DF, TWICE DAILY
     Route: 048
     Dates: start: 2014
  2. SYNTHROID [Concomitant]
     Active Substance: LEVOTHYROXINE SODIUM
     Indication: HYPOTHYROIDISM
     Dosage: 88 UG, ONCE DAILY (EVERY MORNING)
     Route: 048
     Dates: start: 2000
  3. EUCRISA [Suspect]
     Active Substance: CRISABOROLE
     Indication: EYELIDS PRURITUS
     Dosage: UNK, ONCE DAILY (AT NIGHT)
     Route: 061
     Dates: start: 201811
  4. LOSARTAN. [Concomitant]
     Active Substance: LOSARTAN
     Indication: HYPERTENSION
     Dosage: 100 MG, ONCE DAILY (NIGHTLY)
     Route: 048
     Dates: start: 2011
  5. CLOBETASOL PROPION [Concomitant]
     Indication: RASH
     Dosage: UNK, AS NEEDED
     Dates: start: 2008
  6. ESCITALOPRAM [Concomitant]
     Active Substance: ESCITALOPRAM OXALATE
     Indication: DEPRESSION
     Dosage: 20 MG, ONCE DAILY (NIGHTLY)
     Route: 048
     Dates: start: 201803
  7. BISOPROLOL FUMARATE. [Concomitant]
     Active Substance: BISOPROLOL FUMARATE
     Indication: HEART RATE INCREASED
     Dosage: 5 MG, ONCE DAILY (NIGHT)
     Route: 048
     Dates: start: 2013
  8. DICLOFENAC SODIUM. [Concomitant]
     Active Substance: DICLOFENAC SODIUM
     Indication: BACK PAIN
     Dosage: 50 MG, ONCE DAILY (NIGHTLY)
     Route: 048
     Dates: start: 201706
  9. EUCRISA [Suspect]
     Active Substance: CRISABOROLE
     Indication: EYELID RASH
  10. LYRICA [Concomitant]
     Active Substance: PREGABALIN
     Indication: RESTLESS LEGS SYNDROME
     Dosage: 100 MG, TWICE DAILY
     Route: 048
     Dates: start: 201706

REACTIONS (3)
  - Eyelid irritation [Recovering/Resolving]
  - Product use in unapproved indication [Unknown]
  - Swelling of eyelid [Recovering/Resolving]

NARRATIVE: CASE EVENT DATE: 201811
